FAERS Safety Report 18486480 (Version 1)
Quarter: 2020Q4

REPORT INFORMATION
  Report Type: Spontaneous
  Country: US (occurrence: US)
  Receive Date: 20201110
  Receipt Date: 20201110
  Transmission Date: 20210114
  Serious: Yes (Hospitalization)
  Sender: FDA-Public Use
  Company Number: None

PATIENT
  Age: 52 Year
  Sex: Male

DRUGS (1)
  1. LISINOPRIL. [Suspect]
     Active Substance: LISINOPRIL

REACTIONS (7)
  - Drug ineffective [None]
  - Arthropod sting [None]
  - Drooling [None]
  - Respiratory distress [None]
  - Dysphonia [None]
  - Pharyngeal swelling [None]
  - Swollen tongue [None]

NARRATIVE: CASE EVENT DATE: 20200801
